FAERS Safety Report 12818519 (Version 1)
Quarter: 2016Q4

REPORT INFORMATION
  Report Type: Spontaneous
  Country: US (occurrence: US)
  Receive Date: 20161005
  Receipt Date: 20161005
  Transmission Date: 20170207
  Serious: No
  Sender: FDA-Public Use
  Company Number: US-AMGEN-USASP2016130555

PATIENT
  Age: 53 Year
  Sex: Female

DRUGS (1)
  1. ENBREL [Suspect]
     Active Substance: ETANERCEPT
     Indication: RHEUMATOID ARTHRITIS
     Dosage: 50 MG, QWK
     Route: 065
     Dates: start: 201604

REACTIONS (7)
  - Injection site vesicles [Recovering/Resolving]
  - Drug dose omission [Unknown]
  - Injection site pain [Recovering/Resolving]
  - Injection site induration [Recovering/Resolving]
  - Injection site pruritus [Recovering/Resolving]
  - Injection site warmth [Recovering/Resolving]
  - Injection site haemorrhage [Recovering/Resolving]

NARRATIVE: CASE EVENT DATE: 2016
